FAERS Safety Report 8481822-7 (Version None)
Quarter: 2012Q3

REPORT INFORMATION
  Report Type: 
  Country: None (occurrence: None)
  Receive Date: 20120702
  Receipt Date: 20120625
  Transmission Date: 20120928
  Serious: Yes (Hospitalization, Other)
  Sender: FDA-Public Use
  Company Number: US-PFIZER INC-2011293515

PATIENT
  Sex: Female

DRUGS (14)
  1. POTASSIUM CHLORIDE [Concomitant]
     Indication: MINERAL SUPPLEMENTATION
     Dosage: UNK
     Dates: start: 20090101
  2. CHANTIX [Suspect]
     Dosage: STARTING AND CONTINUING MONTH PACKS
     Dates: start: 20080101, end: 20080601
  3. CHANTIX [Suspect]
     Dosage: STARTING AND CONTINUING MONTH PACKS
     Dates: start: 20090701, end: 20100201
  4. SUBOXONE [Concomitant]
     Indication: PAIN
  5. PRILOSEC [Concomitant]
     Indication: GASTROOESOPHAGEAL REFLUX DISEASE
     Dosage: UNK
     Dates: start: 20060101, end: 20120101
  6. VITAMIN B-12 [Concomitant]
     Indication: PERNICIOUS ANAEMIA
     Dosage: UNK
     Dates: start: 20090101
  7. SUBOXONE [Concomitant]
     Indication: DRUG WITHDRAWAL SYNDROME
     Dosage: UNK
     Dates: start: 20030101, end: 20110101
  8. ZOLOFT [Concomitant]
     Indication: DEPRESSION
  9. VALIUM [Concomitant]
     Indication: CONVULSION
  10. ZOLOFT [Concomitant]
     Indication: POST-TRAUMATIC STRESS DISORDER
     Dosage: UNK
     Dates: start: 20030101
  11. ZOLOFT [Concomitant]
     Indication: ANXIETY
  12. CHANTIX [Suspect]
     Indication: SMOKING CESSATION THERAPY
     Dosage: STARTING AND CONTINUING MONTH PACKS
     Dates: start: 20070301, end: 20071001
  13. VALIUM [Concomitant]
     Indication: ANXIETY
     Dosage: UNK
     Dates: start: 20030101
  14. CATAPRES [Concomitant]
     Indication: HYPERTENSION
     Dosage: UNK
     Dates: start: 20050101

REACTIONS (2)
  - CONVULSION [None]
  - INJURY [None]
